FAERS Safety Report 10146205 (Version 1)
Quarter: 2014Q2

REPORT INFORMATION
  Report Type: Spontaneous
  Country: US (occurrence: None)
  Receive Date: 20140430
  Receipt Date: 20140430
  Transmission Date: 20141212
  Serious: Yes (Other)
  Sender: FDA-Public Use
  Company Number: None

PATIENT
  Age: 53 Year
  Sex: Female

DRUGS (1)
  1. LIPOSOMAL DOXORUBICIN [Suspect]
     Indication: CHEMOTHERAPY
     Route: 042
     Dates: start: 20140401

REACTIONS (3)
  - Asthma [None]
  - Feeling hot [None]
  - Skin discolouration [None]
